FAERS Safety Report 7343509-3 (Version None)
Quarter: 2011Q1

REPORT INFORMATION
  Report Type: 
  Country: None (occurrence: None)
  Receive Date: 20110310
  Receipt Date: 20100312
  Transmission Date: 20110831
  Serious: No
  Sender: FDA-Public Use
  Company Number: A0849919A

PATIENT
  Age: 50 Year
  Sex: Female

DRUGS (2)
  1. NICOTINE POLACRILEX [Suspect]
     Route: 048
  2. NICORETTE [Suspect]
     Route: 048

REACTIONS (6)
  - INTENTIONAL DRUG MISUSE [None]
  - LOCAL SWELLING [None]
  - TONGUE ULCERATION [None]
  - NONSPECIFIC REACTION [None]
  - ORAL PAIN [None]
  - EATING DISORDER [None]
